FAERS Safety Report 18249025 (Version 1)
Quarter: 2020Q3

REPORT INFORMATION
  Report Type: Spontaneous
  Country: US (occurrence: US)
  Receive Date: 20200909
  Receipt Date: 20200909
  Transmission Date: 20201103
  Serious: Yes (Hospitalization)
  Sender: FDA-Public Use
  Company Number: US-MYLANLABS-2020M1077359

PATIENT
  Age: 16 Year
  Sex: Female

DRUGS (11)
  1. DEXTROMETHORPHAN [Interacting]
     Active Substance: DEXTROMETHORPHAN
     Indication: PRODUCT USED FOR UNKNOWN INDICATION
     Dosage: UNK
     Route: 065
  2. TRIMETHOPRIM. [Interacting]
     Active Substance: TRIMETHOPRIM
     Indication: PRODUCT USED FOR UNKNOWN INDICATION
     Dosage: UNK
     Route: 065
  3. FLUOXETINE [Suspect]
     Active Substance: FLUOXETINE HYDROCHLORIDE
     Indication: DEPRESSION
     Dosage: 40 MILLIGRAM SEVENTEEN HOURS PRIOR TO THE PRESENTATION
     Route: 048
  4. DIPHENHYDRAMINE. [Interacting]
     Active Substance: DIPHENHYDRAMINE
     Indication: PRODUCT USED FOR UNKNOWN INDICATION
     Dosage: UNK
     Route: 065
  5. SODIUM CHLORIDE. [Suspect]
     Active Substance: SODIUM CHLORIDE
     Indication: ORTHOSTATIC HYPOTENSION
     Dosage: 3 LITER
     Route: 042
  6. MELATONIN [Interacting]
     Active Substance: MELATONIN
     Indication: PRODUCT USED FOR UNKNOWN INDICATION
     Dosage: INGESTED TWENTY 9MG MELATONIN TABLETS (TOTAL 180MG)
     Route: 048
  7. DEXTRORPHAN [Interacting]
     Active Substance: DEXTRORPHAN
     Indication: PRODUCT USED FOR UNKNOWN INDICATION
     Dosage: UNK
     Route: 065
  8. HYDROXYZINE [Interacting]
     Active Substance: HYDROXYZINE HYDROCHLORIDE
     Indication: ANXIETY
     Dosage: 50 MILLIGRAM
     Route: 048
  9. CETIRIZINE [Interacting]
     Active Substance: CETIRIZINE HYDROCHLORIDE
     Indication: PRODUCT USED FOR UNKNOWN INDICATION
     Dosage: UNK
     Route: 065
  10. GUANFACINE. [Interacting]
     Active Substance: GUANFACINE
     Indication: ATTENTION DEFICIT HYPERACTIVITY DISORDER
     Dosage: INGESTED TWICE HER PRESCRIBED DAILY DOSE OF GUANFACINE IMMEDIATE?RELEASE (4 MG TOTAL)
     Route: 048
  11. METHYLPHENIDATE. [Interacting]
     Active Substance: METHYLPHENIDATE
     Indication: ATTENTION DEFICIT HYPERACTIVITY DISORDER
     Dosage: INGESTED TWICE HER PRESCRIBED DAILY DOSE OF METHYLPHENIDATE EXTENDED?RELEASE (72MG TOTAL)
     Route: 048

REACTIONS (8)
  - Hyporesponsive to stimuli [Unknown]
  - Intentional product misuse [Unknown]
  - Vision blurred [Unknown]
  - Orthostatic hypotension [Recovered/Resolved]
  - Paraesthesia [Unknown]
  - Drug interaction [Unknown]
  - Leukocytosis [Unknown]
  - Drug ineffective [Unknown]
